FAERS Safety Report 6028349-X (Version None)
Quarter: 2009Q1

REPORT INFORMATION
  Report Type: 
  Country: None (occurrence: None)
  Receive Date: 20090106
  Receipt Date: 20081229
  Transmission Date: 20090719
  Serious: Yes (Other)
  Sender: FDA-Public Use
  Company Number: US-ASTRAZENECA-2008UW28816

PATIENT
  Sex: Female

DRUGS (1)
  1. ARIMIDEX [Suspect]
     Indication: BREAST CANCER
     Dates: start: 20030101, end: 20080101

REACTIONS (3)
  - BLOOD PRESSURE FLUCTUATION [None]
  - CATARACT [None]
  - RETINAL DISORDER [None]
